FAERS Safety Report 5764518-1 (Version None)
Quarter: 2008Q2

REPORT INFORMATION
  Report Type: 
  Country: None (occurrence: None)
  Receive Date: 20080610
  Receipt Date: 20080603
  Transmission Date: 20081010
  Serious: Yes (Hospitalization)
  Sender: FDA-Public Use
  Company Number: SG-PFIZER INC-2008043089

PATIENT
  Sex: Female
  Weight: 72 kg

DRUGS (3)
  1. SU-011,248 [Suspect]
     Indication: BREAST CANCER
     Route: 048
     Dates: start: 20080218, end: 20080422
  2. FUROSEMIDE [Concomitant]
     Route: 048
     Dates: start: 20080502, end: 20080508
  3. ACETAMINOPHEN [Concomitant]
     Route: 048

REACTIONS (2)
  - DYSPHASIA [None]
  - MUSCULAR WEAKNESS [None]
